FAERS Safety Report 13104667 (Version 1)
Quarter: 2017Q1

REPORT INFORMATION
  Report Type: Report from Study
  Country: BE (occurrence: BE)
  Receive Date: 20170111
  Receipt Date: 20170111
  Transmission Date: 20170428
  Serious: Yes (Death)
  Sender: FDA-Public Use
  Company Number: BE-PFIZER INC-2017010350

PATIENT

DRUGS (2)
  1. IRINOTECAN HCL [Suspect]
     Active Substance: IRINOTECAN HYDROCHLORIDE
     Indication: COLORECTAL CANCER METASTATIC
     Dosage: 150 MG/M2, CYCLIC (AS A 90 MIN INFUSION D1, Q 2 WEEKS)
     Route: 041
  2. MITOMYCIN C [Suspect]
     Active Substance: MITOMYCIN
     Indication: COLORECTAL CANCER METASTATIC
     Dosage: 5 MG/M2, CYCLIC (AS BOLUS D1, Q 2 WEEKS)
     Route: 040

REACTIONS (1)
  - Febrile neutropenia [Fatal]
